FAERS Safety Report 17090414 (Version 2)
Quarter: 2019Q4

REPORT INFORMATION
  Report Type: Spontaneous
  Country: US (occurrence: US)
  Receive Date: 20191129
  Receipt Date: 20191231
  Transmission Date: 20200122
  Serious: No
  Sender: FDA-Public Use
  Company Number: US-UCBSA-2018021376

PATIENT
  Age: 38 Year
  Sex: Female
  Weight: 64 kg

DRUGS (2)
  1. HCT [Concomitant]
     Active Substance: HYDROCHLOROTHIAZIDE
     Indication: HYPERTENSION
     Dosage: 12.5, ONCE DAILY (QD)
     Dates: start: 201710
  2. NEUPRO [Suspect]
     Active Substance: ROTIGOTINE
     Indication: MOVEMENT DISORDER
     Dosage: 1 MG, ONCE DAILY (QD)
     Dates: start: 20180509

REACTIONS (3)
  - Intentional product misuse [Unknown]
  - Nausea [Not Recovered/Not Resolved]
  - Fatigue [Not Recovered/Not Resolved]

NARRATIVE: CASE EVENT DATE: 20180509
